FAERS Safety Report 7411210-3 (Version None)
Quarter: 2011Q2

REPORT INFORMATION
  Report Type: 
  Country: None (occurrence: None)
  Receive Date: 20110405
  Receipt Date: 20110317
  Transmission Date: 20111010
  Serious: Yes (Death)
  Sender: FDA-Public Use
  Company Number: 2011P1005199

PATIENT
  Age: 35 Year
  Sex: Female

DRUGS (5)
  1. DIPHENHYDRAMINE (NO PREF. NAME) [Suspect]
     Dosage: PO
     Route: 048
  2. HYDROMORPHONE (NO PREF. NAME) [Suspect]
     Dosage: PO
     Route: 048
  3. VENLAFAXINE HCL [Suspect]
     Dosage: PO
     Route: 048
  4. OXYCODONE (NO PREF. NAME) [Suspect]
     Dosage: PO
     Route: 048
  5. CYCLOBENZAPRINE [Suspect]
     Dosage: PO
     Route: 048

REACTIONS (1)
  - INTENTIONAL DRUG MISUSE [None]
